FAERS Safety Report 8541711-6 (Version None)
Quarter: 2012Q3

REPORT INFORMATION
  Report Type: 
  Country: None (occurrence: None)
  Receive Date: 20120726
  Receipt Date: 20120719
  Transmission Date: 20120928
  Serious: Yes (Hospitalization, Other)
  Sender: FDA-Public Use
  Company Number: PHHY2012JP043286

PATIENT
  Sex: Female
  Weight: 52 kg

DRUGS (2)
  1. AMLODIPINE BESYLATE [Suspect]
     Route: 048
  2. AFINITOR [Suspect]
     Indication: PANCREATIC NEUROENDOCRINE TUMOUR
     Dosage: 10 MG, DAILY
     Route: 048
     Dates: start: 20120202, end: 20120412

REACTIONS (5)
  - TYPE 2 DIABETES MELLITUS [None]
  - NEOPLASM MALIGNANT [None]
  - INTERSTITIAL LUNG DISEASE [None]
  - NEOPLASM PROGRESSION [None]
  - DRUG INEFFECTIVE [None]
